FAERS Safety Report 7821138-2 (Version None)
Quarter: 2011Q4

REPORT INFORMATION
  Report Type: 
  Country: None (occurrence: None)
  Receive Date: 20111018
  Receipt Date: 20110118
  Transmission Date: 20120403
  Serious: No
  Sender: FDA-Public Use
  Company Number: US-ASTRAZENECA-2011SE03157

PATIENT
  Age: 70 Year
  Sex: Male
  Weight: 59 kg

DRUGS (2)
  1. SYMBICORT [Suspect]
     Indication: BRONCHITIS
     Dosage: 160/4.5, TWO PUFFS IN AM AND TWO PUFFS IN PM
     Route: 055
     Dates: start: 20110113
  2. LIPITOR [Concomitant]

REACTIONS (2)
  - LEUKOPLAKIA ORAL [None]
  - STOMATITIS [None]
